FAERS Safety Report 9053857 (Version 2)
Quarter: 2013Q1

REPORT INFORMATION
  Report Type: Report from Study
  Country: JP (occurrence: JP)
  Receive Date: 20130207
  Receipt Date: 20130307
  Transmission Date: 20140127
  Serious: Yes (Death)
  Sender: FDA-Public Use
  Company Number: JP-PFIZER INC-2013039038

PATIENT
  Age: 66 Year
  Sex: Female
  Weight: 53.6 kg

DRUGS (13)
  1. IRINOTECAN HCL [Suspect]
     Indication: RECTAL CANCER
     Dosage: UNK
     Dates: start: 20121019, end: 20130104
  2. FOLINIC ACID [Suspect]
     Indication: RECTAL CANCER
     Dosage: UNK
     Dates: start: 20121019, end: 20130104
  3. FLUOROURACIL [Suspect]
     Indication: RECTAL CANCER
     Dosage: UNK
     Dates: start: 20121019, end: 20130104
  4. BLINDED THERAPY [Suspect]
     Indication: RECTAL CANCER
     Dosage: UNK
     Dates: start: 20121019, end: 20130104
  5. TAKEPRON [Concomitant]
     Dosage: UNK
     Dates: start: 20120117
  6. CALBLOCK [Concomitant]
     Dosage: UNK
     Dates: start: 20120924
  7. BIO-THREE [Concomitant]
     Dosage: UNK
     Dates: start: 20111210
  8. MAGLAX [Concomitant]
     Dosage: UNK
     Dates: start: 20111210
  9. DEXART [Concomitant]
     Dosage: UNK
     Dates: start: 20121019, end: 20130104
  10. GASTER [Concomitant]
     Dosage: UNK
     Dates: start: 20121019, end: 20130104
  11. GRANISETRON [Concomitant]
     Dosage: UNK
     Dates: start: 20121019, end: 20130104
  12. MUCOSTA [Concomitant]
     Dosage: UNK
     Dates: start: 20121115
  13. DIOVAN [Concomitant]
     Dosage: UNK
     Dates: start: 20121130

REACTIONS (1)
  - Suicide attempt [Fatal]
